FAERS Safety Report 21952859 (Version 1)
Quarter: 2023Q1

REPORT INFORMATION
  Report Type: Other
  Country: None (occurrence: US)
  Receive Date: 20230204
  Receipt Date: 20230204
  Transmission Date: 20230418
  Serious: Yes (Life-Threatening, Hospitalization, Other)
  Sender: FDA-Public Use
  Company Number: US-Spectra Medical Devices, LLC-2137497

PATIENT
  Age: 11 Month
  Sex: Female
  Weight: 8.5 kg

DRUGS (3)
  1. LIDOCAINE HYDROCHLORIDE ANHYDROUS [Suspect]
     Active Substance: LIDOCAINE HYDROCHLORIDE ANHYDROUS
     Indication: Dermatitis diaper
     Route: 061
  2. FLUCONAZOLE [Concomitant]
     Active Substance: FLUCONAZOLE
     Route: 048
  3. NYSTATIN [Concomitant]
     Active Substance: NYSTATIN
     Route: 061

REACTIONS (3)
  - Status epilepticus [Recovered/Resolved]
  - Systemic toxicity [Recovered/Resolved]
  - Product use in unapproved indication [Unknown]
